FAERS Safety Report 19349972 (Version 1)
Quarter: 2021Q2

REPORT INFORMATION
  Report Type: Other
  Country: US (occurrence: US)
  Receive Date: 20210531
  Receipt Date: 20210531
  Transmission Date: 20210717
  Serious: Yes (Hospitalization)
  Sender: FDA-Public Use
  Company Number: US-INTERCEPT-PM2021001754

PATIENT
  Sex: Female
  Weight: 57.6 kg

DRUGS (4)
  1. OCALIVA [Suspect]
     Active Substance: OBETICHOLIC ACID
     Indication: ILLNESS
     Dosage: 5 MILLIGRAM, QD
     Route: 048
     Dates: start: 20210507
  2. DAILY VITE [ASCORBIC ACID;CALCIUM PANTOTHENATE;COLECALCIFEROL;CYANOCOB [Concomitant]
     Indication: PRODUCT USED FOR UNKNOWN INDICATION
  3. URSODIOL. [Concomitant]
     Active Substance: URSODIOL
     Dosage: 300 MILLIGRAM
  4. OCALIVA [Suspect]
     Active Substance: OBETICHOLIC ACID
     Indication: PRIMARY BILIARY CHOLANGITIS
     Dosage: 5 MILLIGRAM, QD
     Route: 048
     Dates: start: 201701

REACTIONS (2)
  - Peripheral artery occlusion [Unknown]
  - Rash pruritic [Not Recovered/Not Resolved]
